FAERS Safety Report 5095022-4 (Version None)
Quarter: 2006Q3

REPORT INFORMATION
  Report Type: 
  Country: None (occurrence: None)
  Receive Date: 20060830
  Receipt Date: 20060818
  Transmission Date: 20061208
  Serious: Yes (Other)
  Sender: FDA-Public Use
  Company Number: 2006078832

PATIENT
  Age: 67 Year
  Sex: Male
  Weight: 79.3795 kg

DRUGS (2)
  1. VFEND [Suspect]
     Indication: BRONCHOPULMONARY ASPERGILLOSIS
     Dosage: 200 MG INTRAVENOUS ; 200 MG ORAL
     Route: 042
     Dates: start: 20060601, end: 20060601
  2. VFEND [Suspect]
     Indication: BRONCHOPULMONARY ASPERGILLOSIS
     Dosage: 200 MG INTRAVENOUS ; 200 MG ORAL
     Route: 042
     Dates: start: 20060601, end: 20060601

REACTIONS (2)
  - DELUSION [None]
  - PSYCHOTIC DISORDER [None]
